FAERS Safety Report 6339580-8 (Version None)
Quarter: 2009Q3

REPORT INFORMATION
  Report Type: 
  Country: None (occurrence: None)
  Receive Date: 20090903
  Receipt Date: 20090120
  Transmission Date: 20100115
  Serious: No
  Sender: FDA-Public Use
  Company Number: US-ALLERGAN-0900704US

PATIENT
  Age: 54 Year
  Sex: Male

DRUGS (9)
  1. ELIMITE [Suspect]
     Indication: ACARODERMATITIS
     Dosage: UNK, SINGLE
     Route: 061
     Dates: start: 20090117, end: 20090117
  2. CORTICOSTEROIDS [Concomitant]
     Route: 061
  3. TETRACYCLINE [Concomitant]
     Indication: SKIN ATROPHY
     Route: 061
  4. TETRACYCLINE [Concomitant]
     Route: 061
  5. LIDEX [Concomitant]
     Route: 061
  6. FLUOCINONIDE [Concomitant]
  7. DERMA SMOOTH [Concomitant]
  8. VASELINE [Concomitant]
     Route: 061
  9. ZOVIRAX [Concomitant]

REACTIONS (2)
  - APPLICATION SITE IRRITATION [None]
  - ERYTHEMA [None]
